FAERS Safety Report 8012891-6 (Version None)
Quarter: 2011Q4

REPORT INFORMATION
  Report Type: 
  Country: None (occurrence: None)
  Receive Date: 20111229
  Receipt Date: 20111227
  Transmission Date: 20120403
  Serious: Yes (Hospitalization)
  Sender: FDA-Public Use
  Company Number: FR-JNJFOC-20111210947

PATIENT
  Age: 70 Year
  Sex: Female
  Weight: 63 kg

DRUGS (1)
  1. LEVOFLOXACIN [Suspect]
     Indication: BRONCHITIS
     Route: 048
     Dates: start: 20111123, end: 20111127

REACTIONS (5)
  - WEIGHT DECREASED [None]
  - ABDOMINAL PAIN [None]
  - LIPASE INCREASED [None]
  - BLOOD AMYLASE INCREASED [None]
  - NAUSEA [None]
